FAERS Safety Report 5315698-3 (Version None)
Quarter: 2007Q2

REPORT INFORMATION
  Report Type: 
  Country: None (occurrence: None)
  Receive Date: 20070430
  Receipt Date: 20070430
  Transmission Date: 20071010
  Serious: Yes (Life-Threatening, Hospitalization, Other)
  Sender: FDA-Public Use
  Company Number: None

PATIENT
  Age: 37 Year
  Sex: Female
  Weight: 45.3597 kg

DRUGS (2)
  1. PREDNISONE TAB [Suspect]
     Indication: DRUG HYPERSENSITIVITY
     Dosage: 5 MG.
     Dates: start: 20070330, end: 20070407
  2. PREDNISONE TAB [Suspect]
     Indication: URTICARIA
     Dosage: 5 MG.
     Dates: start: 20070330, end: 20070407

REACTIONS (24)
  - ANGINA PECTORIS [None]
  - ARTHRALGIA [None]
  - CONFUSIONAL STATE [None]
  - DIZZINESS [None]
  - DYSPEPSIA [None]
  - EYE SWELLING [None]
  - FATIGUE [None]
  - FLATULENCE [None]
  - GASTROOESOPHAGEAL REFLUX DISEASE [None]
  - HEADACHE [None]
  - JOINT LOCK [None]
  - MIGRAINE [None]
  - MUSCLE TIGHTNESS [None]
  - MUSCULAR WEAKNESS [None]
  - NAUSEA [None]
  - OSTEONECROSIS [None]
  - PALPITATIONS [None]
  - PARAESTHESIA ORAL [None]
  - RESPIRATORY DISORDER [None]
  - SENSATION OF HEAVINESS [None]
  - TINNITUS [None]
  - TREMOR [None]
  - VESSEL PUNCTURE SITE HAEMATOMA [None]
  - VISION BLURRED [None]
